FAERS Safety Report 7977018-5 (Version None)
Quarter: 2011Q4

REPORT INFORMATION
  Report Type: 
  Country: None (occurrence: None)
  Receive Date: 20111213
  Receipt Date: 20111111
  Transmission Date: 20120403
  Serious: No
  Sender: FDA-Public Use
  Company Number: US-AMGEN-USASP2011059583

PATIENT
  Age: 38 Year
  Sex: Female

DRUGS (2)
  1. LEFLUNOMIDE [Concomitant]
  2. ENBREL [Suspect]
     Indication: RHEUMATOID ARTHRITIS
     Dosage: 50 MG, QWK
     Dates: start: 20111107

REACTIONS (5)
  - BACK PAIN [None]
  - MICTURITION URGENCY [None]
  - FEELING COLD [None]
  - ARTHRALGIA [None]
  - PAIN IN EXTREMITY [None]
